FAERS Safety Report 23090463 (Version 5)
Quarter: 2024Q1

REPORT INFORMATION
  Report Type: Spontaneous
  Country: US (occurrence: US)
  Receive Date: 20231020
  Receipt Date: 20240212
  Transmission Date: 20240409
  Serious: Yes (Disabling, Other)
  Sender: FDA-Public Use
  Company Number: US-ORGANON-O2310USA002495

PATIENT
  Sex: Male
  Weight: 110.65 kg

DRUGS (2)
  1. SINGULAIR [Suspect]
     Active Substance: MONTELUKAST SODIUM
     Indication: Hypersensitivity
     Dosage: UNK
     Route: 048
     Dates: start: 2010, end: 2021
  2. SINGULAIR [Suspect]
     Active Substance: MONTELUKAST SODIUM
     Indication: Asthma

REACTIONS (75)
  - Neuropsychological symptoms [Not Recovered/Not Resolved]
  - Sleep paralysis [Not Recovered/Not Resolved]
  - Post-traumatic stress disorder [Not Recovered/Not Resolved]
  - Anxiety [Not Recovered/Not Resolved]
  - Depression [Not Recovered/Not Resolved]
  - Suicidal ideation [Not Recovered/Not Resolved]
  - Hallucination [Not Recovered/Not Resolved]
  - Bipolar disorder [Not Recovered/Not Resolved]
  - Arnold-Chiari malformation [Not Recovered/Not Resolved]
  - Major depression [Not Recovered/Not Resolved]
  - Cataplexy [Not Recovered/Not Resolved]
  - Narcolepsy [Not Recovered/Not Resolved]
  - Polyarthritis [Not Recovered/Not Resolved]
  - Vagal nerve stimulator implantation [Not Recovered/Not Resolved]
  - Aggression [Not Recovered/Not Resolved]
  - Hypnagogic hallucination [Not Recovered/Not Resolved]
  - Hypnopompic hallucination [Unknown]
  - Blindness [Recovered/Resolved]
  - Paralysis [Unknown]
  - Agitation [Unknown]
  - Attention deficit hyperactivity disorder [Unknown]
  - Disorientation [Unknown]
  - Sleep disorder [Unknown]
  - Restlessness [Unknown]
  - Nightmare [Unknown]
  - Weight decreased [Unknown]
  - Behaviour disorder [Unknown]
  - Benign prostatic hyperplasia [Not Recovered/Not Resolved]
  - Depression [Not Recovered/Not Resolved]
  - Chronic fatigue syndrome [Not Recovered/Not Resolved]
  - Sinusitis [Not Recovered/Not Resolved]
  - Tension headache [Not Recovered/Not Resolved]
  - Dysphonia [Not Recovered/Not Resolved]
  - Essential hypertension [Not Recovered/Not Resolved]
  - Gastrooesophageal reflux disease [Not Recovered/Not Resolved]
  - Migraine without aura [Not Recovered/Not Resolved]
  - Keloid scar [Not Recovered/Not Resolved]
  - Reflux laryngitis [Not Recovered/Not Resolved]
  - Back pain [Not Recovered/Not Resolved]
  - Spondylolysis [Not Recovered/Not Resolved]
  - Memory impairment [Not Recovered/Not Resolved]
  - Type V hyperlipidaemia [Not Recovered/Not Resolved]
  - Nervous system disorder [Not Recovered/Not Resolved]
  - Restless legs syndrome [Not Recovered/Not Resolved]
  - Weight increased [Unknown]
  - Enuresis [Unknown]
  - Obstructive sleep apnoea syndrome [Unknown]
  - Somnolence [Unknown]
  - Dyskinesia [Unknown]
  - Sleep talking [Unknown]
  - Abnormal dreams [Unknown]
  - Night sweats [Unknown]
  - Insomnia [Unknown]
  - Headache [Not Recovered/Not Resolved]
  - Pyrexia [Unknown]
  - Dizziness [Not Recovered/Not Resolved]
  - Vision blurred [Not Recovered/Not Resolved]
  - Impaired work ability [Unknown]
  - Snoring [Recovered/Resolved]
  - Nocturia [Unknown]
  - Poor quality sleep [Unknown]
  - Choking sensation [Unknown]
  - Dry mouth [Unknown]
  - Fatigue [Unknown]
  - Somnolence [Unknown]
  - Memory impairment [Unknown]
  - Disturbance in attention [Unknown]
  - Asthenia [Unknown]
  - Fall [Unknown]
  - Periodic limb movement disorder [Unknown]
  - Muscle twitching [Unknown]
  - Formication [Unknown]
  - Pain in extremity [Unknown]
  - Burning sensation [Unknown]
  - Tachyphrenia [Unknown]

NARRATIVE: CASE EVENT DATE: 20170825
